FAERS Safety Report 4845971-4 (Version None)
Quarter: 2005Q4

REPORT INFORMATION
  Report Type: 
  Country: None (occurrence: None)
  Receive Date: 20051130
  Receipt Date: 20051116
  Transmission Date: 20060501
  Serious: No
  Sender: FDA-Public Use
  Company Number: 1781-237-1

PATIENT
  Age: 78 Year
  Sex: Female

DRUGS (6)
  1. DEXAMETHASONE SODIUM POSPHATE [Suspect]
     Indication: PROPHYLAXIS
     Dates: start: 20051020
  2. DEXAMETHASONE SODIUM POSPHATE [Suspect]
     Indication: VOMITING
     Dates: start: 20051020
  3. ALOXI (PALONOSETRON) MGI [Suspect]
  4. ZANTAC [Concomitant]
  5. ZOMETA [Concomitant]
  6. ARANESP [Concomitant]

REACTIONS (7)
  - BLOOD PRESSURE INCREASED [None]
  - BUTTOCK PAIN [None]
  - COOMBS TEST POSITIVE [None]
  - HAEMOLYSIS [None]
  - HEART RATE INCREASED [None]
  - PAIN IN EXTREMITY [None]
  - PULMONARY EMBOLISM [None]
